FAERS Safety Report 5897947-6 (Version None)
Quarter: 2008Q3

REPORT INFORMATION
  Report Type: 
  Country: None (occurrence: None)
  Receive Date: 20080925
  Receipt Date: 20080922
  Transmission Date: 20090109
  Serious: Yes (Other)
  Sender: FDA-Public Use
  Company Number: A0748579A

PATIENT
  Age: 70 Year
  Sex: Male

DRUGS (7)
  1. AVANDIA [Suspect]
     Dosage: 8MG PER DAY
     Route: 048
     Dates: start: 20020101
  2. ALTACE [Concomitant]
  3. COREG [Concomitant]
  4. DOXEPINE [Concomitant]
  5. GLIPIZIDE [Concomitant]
  6. METFORMIN HCL [Concomitant]
  7. IBUPROFEN [Concomitant]

REACTIONS (2)
  - ASTHENIA [None]
  - CORONARY ARTERY OCCLUSION [None]
